FAERS Safety Report 14077635 (Version 2)
Quarter: 2018Q1

REPORT INFORMATION
  Report Type: Spontaneous
  Country: US (occurrence: US)
  Receive Date: 20171012
  Receipt Date: 20180205
  Transmission Date: 20180508
  Serious: Yes (Other)
  Sender: FDA-Public Use
  Company Number: US-ROCHE-2006800

PATIENT
  Age: 69 Year
  Sex: Male

DRUGS (3)
  1. RADIATION TREATMENT [Concomitant]
     Active Substance: RADIATION THERAPY
     Indication: BASAL CELL CARCINOMA
     Dosage: AFTER THE FIRST DOSE OF THE MEDICATION
     Route: 065
  2. ERIVEDGE [Suspect]
     Active Substance: VISMODEGIB
     Indication: BASAL CELL CARCINOMA
     Dosage: FOR 18 MONTHS
     Route: 048
  3. ERIVEDGE [Suspect]
     Active Substance: VISMODEGIB
     Dosage: FOR 6 MONTHS
     Route: 048

REACTIONS (2)
  - Renal disorder [Recovered/Resolved]
  - Basal cell carcinoma [Not Recovered/Not Resolved]
